FAERS Safety Report 9310981 (Version 1)
Quarter: 2013Q2

REPORT INFORMATION
  Report Type: Report from Study
  Country: JP (occurrence: JP)
  Receive Date: 20130528
  Receipt Date: 20130528
  Transmission Date: 20140414
  Serious: Yes (Other)
  Sender: FDA-Public Use
  Company Number: JP-009507513-1212JPN010678

PATIENT
  Age: 75 Year
  Sex: Male

DRUGS (17)
  1. EMEND [Suspect]
     Indication: PROPHYLAXIS OF NAUSEA AND VOMITING
     Dosage: 125 MG, QD
     Route: 048
     Dates: start: 20110809, end: 20110809
  2. EMEND [Suspect]
     Dosage: 80 MG, QD
     Route: 048
     Dates: start: 20110810, end: 20110811
  3. EMEND [Suspect]
     Dosage: 125 MG, QD
     Route: 048
     Dates: start: 20110906, end: 20110906
  4. EMEND [Suspect]
     Dosage: 80 MG, QD
     Route: 048
     Dates: start: 20110907, end: 20110908
  5. CISPLATIN [Suspect]
     Indication: SMALL CELL LUNG CANCER
     Dosage: 110 MG, TOTAL DAILY DOSE
     Route: 042
     Dates: start: 20110809, end: 20110809
  6. CISPLATIN [Suspect]
     Dosage: 110MG, TOTAL DAILY DOSE
     Route: 042
     Dates: start: 20110906, end: 20110906
  7. ETOPOSIDE [Suspect]
     Indication: SMALL CELL LUNG CANCER
     Dosage: 110MG,TOTAL DAILY DOSE
     Route: 042
     Dates: start: 20110809, end: 20110811
  8. ETOPOSIDE [Suspect]
     Dosage: 110 MG, TOTAL DAILY DOSE
     Route: 042
     Dates: start: 20110906, end: 20110908
  9. DECADRON (DEXAMETHASONE SODIUM PHOSPHATE) [Concomitant]
     Dosage: UNK
     Dates: start: 20110809, end: 20110809
  10. DECADRON (DEXAMETHASONE SODIUM PHOSPHATE) [Concomitant]
     Dosage: UNK
     Dates: start: 20110906, end: 20110906
  11. DECADRON (DEXAMETHASONE SODIUM PHOSPHATE) [Concomitant]
     Dosage: UNK
     Dates: start: 20110810, end: 20110812
  12. DECADRON (DEXAMETHASONE SODIUM PHOSPHATE) [Concomitant]
     Dosage: UNK
     Dates: start: 20110907, end: 20110909
  13. ALOXI [Concomitant]
     Dosage: UNK
     Dates: start: 20110809, end: 20110809
  14. ALOXI [Concomitant]
     Dosage: UNK
     Dates: start: 20110906, end: 20110906
  15. OMEPRAL [Concomitant]
     Dosage: UNK
     Dates: start: 20110809
  16. NIFLAN [Concomitant]
     Dosage: UNK
     Dates: start: 20110809
  17. PONTAL [Concomitant]
     Dosage: UNK
     Dates: start: 20110906

REACTIONS (5)
  - Agranulocytosis [Recovered/Resolved]
  - Platelet count decreased [Unknown]
  - Constipation [Unknown]
  - Oesophagitis [Unknown]
  - Febrile neutropenia [Unknown]
